FAERS Safety Report 19050485 (Version 1)
Quarter: 2021Q1

REPORT INFORMATION
  Report Type: Spontaneous
  Country: US (occurrence: US)
  Receive Date: 20210323
  Receipt Date: 20210323
  Transmission Date: 20210420
  Serious: Yes (Death, Hospitalization)
  Sender: FDA-Public Use
  Company Number: None

PATIENT
  Age: 76 Year
  Sex: Male

DRUGS (1)
  1. REVLIMID [Suspect]
     Active Substance: LENALIDOMIDE
     Indication: PLASMA CELL MYELOMA
     Route: 048
     Dates: start: 20190306, end: 20210107

REACTIONS (6)
  - Blood calcium decreased [None]
  - Cardio-respiratory arrest [None]
  - Dialysis [None]
  - COVID-19 pneumonia [None]
  - SARS-CoV-2 test positive [None]
  - Anaemia [None]

NARRATIVE: CASE EVENT DATE: 20210113
